FAERS Safety Report 24075237 (Version 5)
Quarter: 2024Q4

REPORT INFORMATION
  Report Type: Spontaneous
  Country: US (occurrence: US)
  Receive Date: 20240710
  Receipt Date: 20241007
  Transmission Date: 20250115
  Serious: No
  Sender: ROCHE
  Company Number: US-ROCHE-10000020871

PATIENT
  Age: 73 Year
  Sex: Female
  Weight: 58.97 kg

DRUGS (1)
  1. ERIVEDGE [Suspect]
     Active Substance: VISMODEGIB
     Indication: Basal cell carcinoma
     Route: 048

REACTIONS (5)
  - Muscle spasms [Unknown]
  - Alopecia [Unknown]
  - Ageusia [Unknown]
  - Weight decreased [Unknown]
  - Pain [Not Recovered/Not Resolved]

NARRATIVE: CASE EVENT DATE: 20240522
